FAERS Safety Report 6646967-2 (Version None)
Quarter: 2010Q1

REPORT INFORMATION
  Report Type: 
  Country: None (occurrence: None)
  Receive Date: 20100323
  Receipt Date: 20100311
  Transmission Date: 20100710
  Serious: Yes (Other)
  Sender: FDA-Public Use
  Company Number: CA-PFIZER INC-2010031726

PATIENT
  Sex: Male

DRUGS (1)
  1. LYRICA [Suspect]
     Indication: HERPES ZOSTER
     Dosage: 75 MG, UNK

REACTIONS (3)
  - HEART RATE INCREASED [None]
  - PSYCHOMOTOR HYPERACTIVITY [None]
  - TREMOR [None]
